FAERS Safety Report 5225285-3 (Version None)
Quarter: 2007Q1

REPORT INFORMATION
  Report Type: 
  Country: None (occurrence: None)
  Receive Date: 20070131
  Receipt Date: 20061129
  Transmission Date: 20070707
  Serious: No
  Sender: FDA-Public Use
  Company Number: US-AMGEN-US201817

PATIENT
  Sex: Male
  Weight: 85.4 kg

DRUGS (8)
  1. VECTIBIX [Suspect]
     Indication: COLORECTAL CANCER
     Route: 042
     Dates: start: 20061117
  2. LISINOPRIL [Concomitant]
     Dates: start: 19960101
  3. XANAX [Concomitant]
     Route: 048
  4. NASONEX [Concomitant]
  5. PROTONIX [Concomitant]
  6. PRILOSEC [Concomitant]
  7. FLOVENT [Concomitant]
  8. ALBUTEROL [Concomitant]

REACTIONS (4)
  - ASTHMA [None]
  - DERMATITIS [None]
  - FATIGUE [None]
  - STOMATITIS [None]
